FAERS Safety Report 5972828-8 (Version None)
Quarter: 2008Q4

REPORT INFORMATION
  Report Type: 
  Country: None (occurrence: None)
  Receive Date: 20081125
  Receipt Date: 20081111
  Transmission Date: 20090506
  Serious: Yes (Other)
  Sender: FDA-Public Use
  Company Number: CH-1167843

PATIENT

DRUGS (1)
  1. TOBREX [Suspect]
     Indication: EYE INJURY
     Route: 047

REACTIONS (2)
  - CONVULSION [None]
  - MUSCLE SPASMS [None]
